FAERS Safety Report 7485035-7 (Version None)
Quarter: 2011Q2

REPORT INFORMATION
  Report Type: 
  Country: None (occurrence: None)
  Receive Date: 20110517
  Receipt Date: 20101105
  Transmission Date: 20111010
  Serious: No
  Sender: FDA-Public Use
  Company Number: US-BAYER-201023594BCC

PATIENT
  Age: 51 Year
  Sex: Male
  Weight: 108.84 kg

DRUGS (1)
  1. NAPROXEN (ALEVE) [Suspect]
     Dosage: 440 MG, BID
     Route: 048
     Dates: start: 20101105

REACTIONS (1)
  - NO ADVERSE EVENT [None]
